FAERS Safety Report 18866759 (Version 1)
Quarter: 2021Q1

REPORT INFORMATION
  Report Type: Spontaneous
  Country: US (occurrence: US)
  Receive Date: 20210209
  Receipt Date: 20210209
  Transmission Date: 20210420
  Serious: Yes (Disabling)
  Sender: FDA-Public Use
  Company Number: None

PATIENT
  Age: 26 Year
  Sex: Female
  Weight: 56.7 kg

DRUGS (3)
  1. MIRENA [Suspect]
     Active Substance: LEVONORGESTREL
  2. LEVOTHYROXINE 50MG [Concomitant]
     Active Substance: LEVOTHYROXINE
  3. VALERIAN ROOT [Concomitant]
     Active Substance: VALERIAN

REACTIONS (15)
  - Dizziness [None]
  - Muscle spasms [None]
  - Nausea [None]
  - Loss of consciousness [None]
  - Menstrual disorder [None]
  - Pyrexia [None]
  - Temperature intolerance [None]
  - Menorrhagia [None]
  - Dysmenorrhoea [None]
  - Anxiety [None]
  - Gait disturbance [None]
  - Pain [None]
  - Depression [None]
  - Vomiting [None]
  - Ovarian cyst [None]
